FAERS Safety Report 6175751-1 (Version None)
Quarter: 2009Q2

REPORT INFORMATION
  Report Type: 
  Country: None (occurrence: None)
  Receive Date: 20090501
  Receipt Date: 20090423
  Transmission Date: 20091009
  Serious: Yes (Other)
  Sender: FDA-Public Use
  Company Number: PT-JNJFOC-20080906481

PATIENT
  Age: 30 Year
  Sex: Female

DRUGS (2)
  1. REMICADE [Suspect]
     Dosage: 2ND DOSE
     Route: 042
  2. REMICADE [Suspect]
     Indication: RHEUMATOID ARTHRITIS
     Dosage: FIRST DOSE
     Route: 042

REACTIONS (6)
  - FLUSHING [None]
  - HYPERHIDROSIS [None]
  - INFUSION RELATED REACTION [None]
  - LOSS OF CONSCIOUSNESS [None]
  - PHARYNGEAL OEDEMA [None]
  - SUPRAVENTRICULAR EXTRASYSTOLES [None]
